FAERS Safety Report 14258380 (Version 1)
Quarter: 2017Q4

REPORT INFORMATION
  Report Type: Spontaneous
  Country: US (occurrence: US)
  Receive Date: 20171206
  Receipt Date: 20171206
  Transmission Date: 20180321
  Serious: Yes (Other)
  Sender: FDA-Public Use
  Company Number: None

PATIENT
  Age: 58 Year
  Sex: Female
  Weight: 61.2 kg

DRUGS (22)
  1. IBRANCE [Suspect]
     Active Substance: PALBOCICLIB
     Indication: BREAST CANCER
     Route: 048
     Dates: start: 20171004
  2. LETROZOLE. [Concomitant]
     Active Substance: LETROZOLE
  3. PLEGRIDY STARTER PACK [Concomitant]
  4. PROAIR HFA [Concomitant]
     Active Substance: ALBUTEROL SULFATE
  5. AMLODIPINE [Concomitant]
     Active Substance: AMLODIPINE BESYLATE
  6. NORCO [Concomitant]
     Active Substance: ACETAMINOPHEN\HYDROCODONE BITARTRATE
  7. OMEPRAZOLE. [Concomitant]
     Active Substance: OMEPRAZOLE
  8. BENAZEPRIL [Concomitant]
     Active Substance: BENAZEPRIL HYDROCHLORIDE
  9. CALCIUM+D3 [Concomitant]
  10. CORTISPORIN [Concomitant]
     Active Substance: BACITRACIN ZINC\HYDROCORTISONE\NEOMYCIN SULFATE\POLYMYXIN B SULFATE
  11. OMEGA 3-6-9 COMPLEX [Concomitant]
  12. ALPRAZOLAM. [Concomitant]
     Active Substance: ALPRAZOLAM
  13. GARCINIA CAMBOGIA-CHROMIUM [Concomitant]
  14. DULOXETINE. [Concomitant]
     Active Substance: DULOXETINE
  15. GLYCOL LAX [Concomitant]
  16. ABILIFY [Concomitant]
     Active Substance: ARIPIPRAZOLE
  17. ASPIRIN. [Concomitant]
     Active Substance: ASPIRIN
  18. LOVASTATIN. [Concomitant]
     Active Substance: LOVASTATIN
  19. NORTRIPTYLINE [Concomitant]
     Active Substance: NORTRIPTYLINE
  20. HCTZ [Concomitant]
     Active Substance: HYDROCHLOROTHIAZIDE
  21. DIPHENYDRAMINE [Concomitant]
     Active Substance: DIPHENHYDRAMINE HYDROCHLORIDE
  22. HYDROCORTISONE. [Concomitant]
     Active Substance: HYDROCORTISONE

REACTIONS (1)
  - Dysphagia [None]
